FAERS Safety Report 9253955 (Version 4)
Quarter: 2013Q4

REPORT INFORMATION
  Report Type: Spontaneous
  Country: FR (occurrence: None)
  Receive Date: 20130418
  Receipt Date: 20131125
  Transmission Date: 20140711
  Serious: Yes (Hospitalization)
  Sender: FDA-Public Use
  Company Number: JPI-P-026268

PATIENT
  Age: 21 Year
  Sex: Female

DRUGS (5)
  1. XYREM (SODIUM OXYBATE) ORAL SOLUTION, 500MG/ML [Suspect]
     Indication: CATAPLEXY
     Dosage: 2 GM (1 GM, 2 IN 1 D), ORAL
     Route: 048
     Dates: start: 201209, end: 2012
  2. MODAFINIL [Suspect]
     Indication: PRODUCT USED FOR UNKNOWN INDICATION
     Dosage: 400 MG, SINGLE, ORAL?
     Route: 048
  3. ZOLOFT (SERTRALINE) [Concomitant]
  4. CONTRACEPTIVE PILL [Concomitant]
  5. PAROXETINE [Concomitant]

REACTIONS (15)
  - Nausea [None]
  - Insomnia [None]
  - Dizziness [None]
  - Tremor [None]
  - Feeling drunk [None]
  - Somnolence [None]
  - Panic attack [None]
  - Paralysis [None]
  - Vertigo [None]
  - Vomiting [None]
  - Nightmare [None]
  - Cataplexy [None]
  - Weight decreased [None]
  - Enuresis [None]
  - Fatigue [None]
